FAERS Safety Report 24646830 (Version 3)
Quarter: 2024Q4

REPORT INFORMATION
  Report Type: Spontaneous
  Country: PL (occurrence: PL)
  Receive Date: 20241121
  Receipt Date: 20241212
  Transmission Date: 20250115
  Serious: Yes (Other)
  Sender: AMGEN
  Company Number: PL-ROCHE-10000118947

PATIENT
  Age: 73 Year
  Sex: Female
  Weight: 54 kg

DRUGS (10)
  1. BEVACIZUMAB [Suspect]
     Active Substance: BEVACIZUMAB
     Indication: Hepatocellular carcinoma
     Dosage: 840 MILLIGRAM, Q3WK (ON 03-SEP-2024, SHE RECEIVED THE MOST RECENT DOSE OF BEVACIZUMAB 840 MG PRIOR T
     Route: 040
     Dates: start: 20240813
  2. ATEZOLIZUMAB [Suspect]
     Active Substance: ATEZOLIZUMAB
     Indication: Hepatocellular carcinoma
     Dosage: UNK UNK, Q3WK (ON 03-SEP-2024 SHE RECEIVED MOST RECENT DOSE OF 1200 MG PRIOR TO THE EVENT)
     Route: 040
  3. TIRAGOLUMAB [Suspect]
     Active Substance: TIRAGOLUMAB
     Indication: Hepatocellular carcinoma
     Dosage: UNK UNK, Q3WK (ON 03-SEP-2024 SHE RECEIVED MOST RECENT DOSE OF  PRIOR TO THE EVENT)
     Route: 040
  4. ROSUVASTATIN [Concomitant]
     Active Substance: ROSUVASTATIN
     Indication: Hypercholesterolaemia
     Dosage: 20 MILLIGRAM, QD
     Route: 048
     Dates: start: 202103
  5. ACARD [Concomitant]
     Indication: Leriche syndrome
     Dosage: 75 MILLIGRAM, QD
     Route: 048
     Dates: start: 202103
  6. ACETAMINOPHEN\CODEINE PHOSPHATE [Concomitant]
     Active Substance: ACETAMINOPHEN\CODEINE PHOSPHATE
     Dosage: 15 MILLIGRAM (GIVEN FOR PROPHYLAXIS IS YES)
     Route: 048
     Dates: start: 20240917, end: 20240917
  7. TACE [Concomitant]
     Active Substance: CHLOROTRIANISENE
     Indication: Neoplasm malignant
     Dosage: UNK
     Route: 065
     Dates: start: 20230710
  8. TACE [Concomitant]
     Active Substance: CHLOROTRIANISENE
     Dosage: UNK
     Route: 065
     Dates: start: 20230718
  9. TACE [Concomitant]
     Active Substance: CHLOROTRIANISENE
     Dosage: UNK
     Route: 065
     Dates: start: 20240122
  10. TACE [Concomitant]
     Active Substance: CHLOROTRIANISENE
     Dosage: UNK
     Route: 065
     Dates: start: 20240301

REACTIONS (2)
  - Hyperthyroidism [Recovering/Resolving]
  - Off label use [Unknown]

NARRATIVE: CASE EVENT DATE: 20240924
